FAERS Safety Report 7882362-6 (Version None)
Quarter: 2011Q4

REPORT INFORMATION
  Report Type: 
  Country: None (occurrence: None)
  Receive Date: 20111101
  Receipt Date: 20110614
  Transmission Date: 20120403
  Serious: No
  Sender: FDA-Public Use
  Company Number: US-AMGEN-USASP2011030591

PATIENT
  Age: 39 Year
  Weight: 81.633 kg

DRUGS (10)
  1. SAVELLA [Concomitant]
     Indication: FIBROMYALGIA
     Dosage: UNK
  2. METHOTREXATE [Concomitant]
     Indication: RHEUMATOID ARTHRITIS
     Dosage: UNK
     Route: 048
  3. HYDROXYCHLOROQUINE SULFATE [Concomitant]
     Indication: RHEUMATOID ARTHRITIS
     Dosage: UNK
  4. HUMIRA [Concomitant]
     Indication: RHEUMATOID ARTHRITIS
     Dosage: 40 MG, Q2WK
     Dates: start: 20110508
  5. TRAMADOL HCL [Concomitant]
     Indication: PAIN
     Dosage: UNK
  6. PREDNISONE [Concomitant]
     Indication: RHEUMATOID ARTHRITIS
     Dosage: UNK
  7. ERGOCALCIFEROL [Concomitant]
     Dosage: UNK
  8. CLONAZEPAM [Concomitant]
     Indication: MUSCLE SPASMS
     Dosage: UNK
  9. HYDROCODONE BITARTRATE [Concomitant]
     Indication: PAIN
     Dosage: UNK
  10. ENBREL [Suspect]
     Indication: PRODUCT USED FOR UNKNOWN INDICATION

REACTIONS (5)
  - INJECTION SITE PAIN [None]
  - ASTHENIA [None]
  - CONTUSION [None]
  - FATIGUE [None]
  - MYALGIA [None]
